FAERS Safety Report 7844827-2 (Version None)
Quarter: 2011Q4

REPORT INFORMATION
  Report Type: 
  Country: None (occurrence: None)
  Receive Date: 20111025
  Receipt Date: 20111020
  Transmission Date: 20120403
  Serious: Yes (Death)
  Sender: FDA-Public Use
  Company Number: US-GLAXOSMITHKLINE-A0950283A

PATIENT
  Age: 23 Year
  Sex: Male
  Weight: 47.1 kg

DRUGS (1)
  1. PROMACTA [Suspect]
     Indication: APLASTIC ANAEMIA
     Dosage: 50MG PER DAY
     Route: 048
     Dates: start: 20100907

REACTIONS (1)
  - DEATH [None]
